FAERS Safety Report 25993574 (Version 1)
Quarter: 2025Q4

REPORT INFORMATION
  Report Type: Spontaneous
  Country: US (occurrence: US)
  Receive Date: 20251104
  Receipt Date: 20251104
  Transmission Date: 20260118
  Serious: No
  Sender: APOTEX
  Company Number: US-APOTEX-2025AP031166

PATIENT
  Age: 38 Year
  Sex: Male

DRUGS (8)
  1. LEVOFLOXACIN [Suspect]
     Active Substance: LEVOFLOXACIN
     Indication: Hidradenitis
     Dosage: UNK
     Route: 065
  2. LEVOFLOXACIN [Suspect]
     Active Substance: LEVOFLOXACIN
     Indication: Condition aggravated
  3. RIFAMPIN [Suspect]
     Active Substance: RIFAMPIN
     Indication: Hidradenitis
     Dosage: UNK
     Route: 065
  4. RIFAMPIN [Suspect]
     Active Substance: RIFAMPIN
     Indication: Condition aggravated
  5. FINASTERIDE [Concomitant]
     Active Substance: FINASTERIDE
     Indication: Hidradenitis
     Dosage: UNK
     Route: 065
  6. FINASTERIDE [Concomitant]
     Active Substance: FINASTERIDE
     Indication: Condition aggravated
  7. INFLIXIMAB [Concomitant]
     Active Substance: INFLIXIMAB
     Indication: Hidradenitis
     Dosage: UNK
     Route: 065
  8. INFLIXIMAB [Concomitant]
     Active Substance: INFLIXIMAB
     Indication: Condition aggravated

REACTIONS (3)
  - Gastrointestinal pain [Unknown]
  - Vomiting [Unknown]
  - Diarrhoea [Unknown]
